FAERS Safety Report 14367519 (Version 1)
Quarter: 2018Q1

REPORT INFORMATION
  Report Type: Spontaneous
  Country: US (occurrence: US)
  Receive Date: 20180109
  Receipt Date: 20180109
  Transmission Date: 20180509
  Serious: No
  Sender: FDA-Public Use
  Company Number: US-PERRIGO-17US031249

PATIENT
  Age: 9 Year
  Sex: Female
  Weight: 34.14 kg

DRUGS (3)
  1. CLINDAMYCIN AND BENZOYL PEROXIDE [Suspect]
     Active Substance: BENZOYL PEROXIDE\CLINDAMYCIN PHOSPHATE
     Indication: ACNE
     Dosage: THIN LAYER, QD
     Route: 061
     Dates: start: 201705, end: 201711
  2. CLINDAMYCIN AND BENZOYL PEROXIDE [Suspect]
     Active Substance: BENZOYL PEROXIDE\CLINDAMYCIN PHOSPHATE
     Dosage: THIN LAYER, BID
     Route: 061
     Dates: start: 201712, end: 201712
  3. TAZORAC [Concomitant]
     Active Substance: TAZAROTENE
     Indication: ACNE
     Dosage: UNK
     Route: 065

REACTIONS (4)
  - Drug effect decreased [Unknown]
  - Inappropriate schedule of drug administration [Recovered/Resolved]
  - Condition aggravated [Not Recovered/Not Resolved]
  - Drug administered to patient of inappropriate age [Recovered/Resolved]

NARRATIVE: CASE EVENT DATE: 201705
